FAERS Safety Report 4486957-1 (Version None)
Quarter: 2004Q3

REPORT INFORMATION
  Report Type: 
  Country: None (occurrence: None)
  Receive Date: 20040921
  Receipt Date: 20031029
  Transmission Date: 20050211
  Serious: Yes (Hospitalization)
  Sender: FDA-Public Use
  Company Number: 163-20785-03100712

PATIENT
  Age: 42 Year
  Sex: Female
  Weight: 61 kg

DRUGS (8)
  1. THALOMID [Suspect]
     Indication: LUNG NEOPLASM MALIGNANT
     Dosage: SEE IMAGE
     Route: 048
     Dates: start: 20030814, end: 20031002
  2. THALOMID [Suspect]
     Indication: METASTASES TO CENTRAL NERVOUS SYSTEM
     Dosage: SEE IMAGE
     Route: 048
     Dates: start: 20030814, end: 20031002
  3. THALOMID [Suspect]
     Indication: LUNG NEOPLASM MALIGNANT
     Dosage: SEE IMAGE
     Route: 048
     Dates: start: 20030721, end: 20040412
  4. THALOMID [Suspect]
     Indication: METASTASES TO CENTRAL NERVOUS SYSTEM
     Dosage: SEE IMAGE
     Route: 048
     Dates: start: 20030721, end: 20040412
  5. THALOMID [Suspect]
     Indication: LUNG NEOPLASM MALIGNANT
     Dosage: SEE IMAGE
     Route: 048
     Dates: start: 20031001
  6. THALOMID [Suspect]
     Indication: METASTASES TO CENTRAL NERVOUS SYSTEM
     Dosage: SEE IMAGE
     Route: 048
     Dates: start: 20031001
  7. DEXAMETHASONE [Suspect]
     Indication: METASTASES TO CENTRAL NERVOUS SYSTEM
  8. DILANTIN [Concomitant]

REACTIONS (10)
  - CONVULSION [None]
  - DEHYDRATION [None]
  - FATIGUE [None]
  - FUNGAL INFECTION [None]
  - GASTROINTESTINAL INFECTION [None]
  - HYPOKALAEMIA [None]
  - NAUSEA [None]
  - RASH MACULO-PAPULAR [None]
  - SINUSITIS [None]
  - VOMITING [None]
